FAERS Safety Report 6061582-X (Version None)
Quarter: 2009Q1

REPORT INFORMATION
  Report Type: 
  Country: None (occurrence: None)
  Receive Date: 20090202
  Receipt Date: 20090123
  Transmission Date: 20090719
  Serious: Yes (Hospitalization)
  Sender: FDA-Public Use
  Company Number: IT-BAYER-200911896GPV

PATIENT
  Age: 84 Year
  Sex: Female

DRUGS (5)
  1. ASPIRIN [Suspect]
     Indication: ANTICOAGULANT THERAPY
     Dosage: TOTAL DAILY DOSE: 100 MG  UNIT DOSE: 100 MG
     Route: 048
     Dates: start: 19940101, end: 20090112
  2. LASIX [Concomitant]
     Indication: POLYURIA
     Dosage: TOTAL DAILY DOSE: 25 MG  UNIT DOSE: 25 MG
     Route: 048
     Dates: start: 19940101, end: 20090112
  3. LANOXIN [Concomitant]
     Indication: CARDIAC FAILURE
     Dosage: TOTAL DAILY DOSE: 0.0625 MG  UNIT DOSE: 0.062 MG
     Route: 048
     Dates: start: 19940101, end: 20090112
  4. NIMOTOP [Concomitant]
     Indication: CARDIAC FAILURE
     Route: 048
     Dates: start: 19940101, end: 20090112
  5. EPINITRIL [Concomitant]
     Indication: CARDIAC FAILURE
     Dosage: TOTAL DAILY DOSE: 10 MG  UNIT DOSE: 10 MG
     Route: 062
     Dates: start: 19940101, end: 20090112

REACTIONS (2)
  - GASTRIC ULCER [None]
  - PORTAL HYPERTENSIVE GASTROPATHY [None]
